FAERS Safety Report 15490535 (Version 2)
Quarter: 2019Q1

REPORT INFORMATION
  Report Type: Report from Study
  Country: US (occurrence: US)
  Receive Date: 20181011
  Receipt Date: 20190204
  Transmission Date: 20190417
  Serious: Yes (Hospitalization, Other)
  Sender: FDA-Public Use
  Company Number: US-ACTELION-A-US2017-159656

PATIENT
  Age: 71 Year
  Sex: Female
  Weight: 84.81 kg

DRUGS (2)
  1. ADEMPAS [Concomitant]
     Active Substance: RIOCIGUAT
  2. TRACLEER [Suspect]
     Active Substance: BOSENTAN
     Indication: PULMONARY ARTERIAL HYPERTENSION
     Dosage: 125 MG, BID
     Route: 048

REACTIONS (6)
  - Weight increased [Unknown]
  - Headache [Unknown]
  - Renal failure [Unknown]
  - Dyspnoea [Unknown]
  - Neck pain [Unknown]
  - Fluid retention [Unknown]

NARRATIVE: CASE EVENT DATE: 201708
